FAERS Safety Report 24094839 (Version 5)
Quarter: 2024Q3

REPORT INFORMATION
  Report Type: Report from Study
  Country: GB (occurrence: GB)
  Receive Date: 20240716
  Receipt Date: 20240813
  Transmission Date: 20241017
  Serious: Yes (Hospitalization, Other)
  Sender: ABBVIE
  Company Number: GB-ABBVIE-5838567

PATIENT
  Sex: Female

DRUGS (3)
  1. CARBIDOPA\LEVODOPA [Suspect]
     Active Substance: CARBIDOPA\LEVODOPA
     Indication: Parkinson^s disease
     Dosage: DAY DOSES C.R 4.0MLS E.D 2.0MLS M.D 3.7MLS NIGHT DOSES: C.R 3.0MLS E.D 2.0MLS M.D 3.0MLS, 20MG/5MG
     Route: 050
  2. CARBIDOPA\LEVODOPA [Suspect]
     Active Substance: CARBIDOPA\LEVODOPA
  3. NITROFURANTOIN [Suspect]
     Active Substance: NITROFURANTOIN
     Indication: Urinary tract infection
     Route: 065

REACTIONS (14)
  - Skin cancer [Unknown]
  - Headache [Unknown]
  - Giant cell arteritis [Unknown]
  - Intentional product misuse [Unknown]
  - Visual impairment [Unknown]
  - Adverse drug reaction [Unknown]
  - Urinary tract infection [Not Recovered/Not Resolved]
  - Device dislocation [Not Recovered/Not Resolved]
  - Cognitive disorder [Unknown]
  - Confusional state [Not Recovered/Not Resolved]
  - Wrong technique in device usage process [Not Recovered/Not Resolved]
  - Dysphagia [Unknown]
  - Device use issue [Unknown]
  - Unevaluable event [Unknown]

NARRATIVE: CASE EVENT DATE: 20240101
